FAERS Safety Report 7483821-0 (Version None)
Quarter: 2011Q2

REPORT INFORMATION
  Report Type: 
  Country: None (occurrence: None)
  Receive Date: 20110517
  Receipt Date: 20110405
  Transmission Date: 20111010
  Serious: Yes (Hospitalization, Other)
  Sender: FDA-Public Use
  Company Number: US-BAYER-201025557NA

PATIENT
  Sex: Female
  Weight: 45.351 kg

DRUGS (3)
  1. MULTI-VITAMINS [Concomitant]
  2. YAZ [Suspect]
     Indication: ABDOMINAL PAIN
  3. YAZ [Suspect]
     Indication: CONTRACEPTION
     Dosage: UNK UNK, UNK
     Route: 048
     Dates: start: 20051201, end: 20100601

REACTIONS (6)
  - CHOLELITHIASIS [None]
  - HAEMATOMA [None]
  - NAUSEA [None]
  - ABDOMINAL PAIN [None]
  - PORTAL VENOUS GAS [None]
  - CHOLECYSTITIS [None]
